FAERS Safety Report 10660143 (Version 2)
Quarter: 2015Q1

REPORT INFORMATION
  Report Type: Spontaneous
  Country: US (occurrence: US)
  Receive Date: 20141217
  Receipt Date: 20150102
  Transmission Date: 20150720
  Serious: Yes (Death, Other)
  Sender: FDA-Public Use
  Company Number: US-SA-2014SA142053

PATIENT
  Age: 66 Year
  Sex: Female

DRUGS (8)
  1. DACARBAZINE. [Concomitant]
     Active Substance: DACARBAZINE
  2. TAXOTERE [Suspect]
     Active Substance: DOCETAXEL
     Indication: LEIOMYOSARCOMA
     Route: 065
  3. IFEX [Concomitant]
     Active Substance: IFOSFAMIDE
  4. ANTINEOPLASTIC AGENTS [Concomitant]
     Active Substance: UNSPECIFIED INGREDIENT
  5. DOXORUBICIN [Concomitant]
     Active Substance: DOXORUBICIN
  6. ANTINEOPLASTIC AGENTS [Concomitant]
     Active Substance: UNSPECIFIED INGREDIENT
  7. GEMZAR [Concomitant]
     Active Substance: GEMCITABINE HYDROCHLORIDE
  8. ANTINEOPLASTIC AGENTS [Concomitant]
     Active Substance: UNSPECIFIED INGREDIENT
     Route: 048

REACTIONS (2)
  - Death [Fatal]
  - Therapeutic response decreased [Unknown]

NARRATIVE: CASE EVENT DATE: 20141130
